FAERS Safety Report 8820676 (Version 1)
Quarter: 2012Q4

REPORT INFORMATION
  Report Type: 
  Country: US (occurrence: US)
  Receive Date: 20121002
  Receipt Date: 20121002
  Transmission Date: 20130627
  Serious: Yes (Hospitalization)
  Sender: FDA-Public Use
  Company Number: US-UCBSA-067701

PATIENT
  Age: 87 Year
  Sex: Male
  Weight: 79.38 kg

DRUGS (17)
  1. NEUPRO [Suspect]
     Indication: PARKINSON^S DISEASE
     Dosage: UNKNOWN DOSE
     Dates: start: 20120823, end: 20120829
  2. ASPIRIN [Concomitant]
     Route: 048
  3. ADVODART [Concomitant]
     Route: 048
  4. SINEMET [Concomitant]
     Dosage: DOSE: 25/100,1/2 TAB QID,TOTAL DAILY DOSE:50/200 MG
     Route: 048
  5. PRILOSEC [Concomitant]
     Route: 048
  6. MIRALAX [Concomitant]
     Route: 048
  7. ALDACTONE [Concomitant]
     Route: 048
  8. CRANBERRY EXTRACT [Concomitant]
     Dosage: 2 PILLS DAILY
     Route: 048
  9. FLORINEF [Concomitant]
     Dosage: 2 PILLS EVERY MORNING
     Route: 048
  10. LASIX [Concomitant]
     Route: 048
  11. IMDUR [Concomitant]
     Dosage: DOSE:30 MG 1/2 TAB
     Route: 048
  12. K-DUR [Concomitant]
     Dosage: 2 TAB IN AM AND 1 TAB IN EVENING
     Route: 048
  13. METHAZOLAMIDE [Concomitant]
     Route: 048
  14. NITROSTAT [Concomitant]
     Dosage: 0.4 MG PRN
  15. TYLENOL [Concomitant]
     Route: 048
  16. VITAMIN B12 [Concomitant]
     Route: 048
  17. IBUPROFEN [Concomitant]
     Route: 048

REACTIONS (2)
  - VIIth nerve paralysis [Recovered/Resolved]
  - Mental status changes [Recovered/Resolved]
